FAERS Safety Report 19394626 (Version 1)
Quarter: 2021Q2

REPORT INFORMATION
  Report Type: Spontaneous
  Country: US (occurrence: US)
  Receive Date: 20210609
  Receipt Date: 20210609
  Transmission Date: 20210717
  Serious: No
  Sender: FDA-Public Use
  Company Number: US-TEVA-2021-US-1917707

PATIENT
  Sex: Female
  Weight: 61.23 kg

DRUGS (18)
  1. AJOVY [Suspect]
     Active Substance: FREMANEZUMAB-VFRM
     Indication: MIGRAINE
     Route: 065
  2. LAMOTRIGINE. [Concomitant]
     Active Substance: LAMOTRIGINE
  3. LINZESS [Concomitant]
     Active Substance: LINACLOTIDE
     Route: 065
  4. VIIBRYD [Concomitant]
     Active Substance: VILAZODONE HYDROCHLORIDE
     Dosage: 20 MG AT NIGHT WITH MEAL
     Route: 065
  5. CLARITIN [Concomitant]
     Active Substance: LORATADINE
     Indication: SINUS DISORDER
     Dosage: 100 MILLIGRAM DAILY;
     Route: 065
  6. GABAPENTIN. [Concomitant]
     Active Substance: GABAPENTIN
     Dosage: 300 MILLIGRAM DAILY;
     Route: 065
  7. VITAMIN D [Concomitant]
     Active Substance: VITAMIN D NOS
     Route: 065
  8. AJOVY [Suspect]
     Active Substance: FREMANEZUMAB-VFRM
  9. TOPAMAX [Concomitant]
     Active Substance: TOPIRAMATE
     Dosage: 200 MILLIGRAM DAILY;
     Route: 065
  10. TIZANIDINE. [Concomitant]
     Active Substance: TIZANIDINE
     Dosage: AS NEEDED
     Route: 065
  11. EMGALITY [Concomitant]
     Active Substance: GALCANEZUMAB-GNLM
  12. SUMATRIPTAN. [Concomitant]
     Active Substance: SUMATRIPTAN
     Route: 065
  13. MULTIVITAMIN [Concomitant]
     Active Substance: VITAMINS
     Route: 065
  14. OMEPRAZOLE. [Concomitant]
     Active Substance: OMEPRAZOLE
     Dosage: AS NEEDED
     Route: 065
  15. CALCIUM [Concomitant]
     Active Substance: CALCIUM
     Route: 065
  16. REYVOW [Concomitant]
     Active Substance: LASMIDITAN
  17. TRAZODONE [Concomitant]
     Active Substance: TRAZODONE HYDROCHLORIDE
     Indication: INSOMNIA
     Dosage: 50 MILLIGRAM DAILY;
     Route: 065
  18. BOTOX [Concomitant]
     Active Substance: ONABOTULINUMTOXINA
     Route: 065

REACTIONS (3)
  - Headache [Unknown]
  - Drug ineffective [Unknown]
  - Expired product administered [Unknown]
